FAERS Safety Report 19258391 (Version 12)
Quarter: 2023Q4

REPORT INFORMATION
  Report Type: Report from Study
  Country: FR (occurrence: None)
  Receive Date: 20210514
  Receipt Date: 20231109
  Transmission Date: 20240110
  Serious: Yes (Death, Hospitalization)
  Sender: FDA-Public Use
  Company Number: FR-ROCHE-2812834

PATIENT
  Age: 63 Year
  Sex: Male
  Weight: 98.6 kg

DRUGS (22)
  1. TIRAGOLUMAB [Suspect]
     Active Substance: TIRAGOLUMAB
     Indication: Non-small cell lung cancer
     Dosage: ON 07/APR/2021, THE PATIENT RECEIVED MOST RECENT DOSE PRIOR TO SAE
     Route: 042
     Dates: start: 20210407
  2. ATEZOLIZUMAB [Suspect]
     Active Substance: ATEZOLIZUMAB
     Indication: Non-small cell lung cancer
     Dosage: ON 07/APR/2021, THE PATIENT RECEIVED MOST RECENT DOSE (200 ML) PRIOR TO AE/SAE 200 ML
     Route: 041
     Dates: start: 20210407
  3. CARBOPLATIN [Suspect]
     Active Substance: CARBOPLATIN
     Indication: Non-small cell lung cancer
     Dosage: DOSE OF AREA UNDER THE CONCENTRATION-TIME CURVE (AUC) OF 5 (AS PER PROTOCOL).?ON 07/APR/2021, THE PA
     Route: 042
     Dates: start: 20210407, end: 20210517
  4. PEMETREXED [Suspect]
     Active Substance: PEMETREXED
     Indication: Non-small cell lung cancer
     Dosage: ON 07/APR/2021, THE PATIENT RECEIVED MOST RECENT DOSE 1075 MG PRIOR TO SAE.
     Route: 042
     Dates: start: 20210407, end: 20210517
  5. FOLIC ACID [Concomitant]
     Active Substance: FOLIC ACID
     Indication: Premedication
     Dates: start: 20210307, end: 20210504
  6. POTASSIUM CHLORIDE [Concomitant]
     Active Substance: POTASSIUM CHLORIDE
     Indication: Prophylaxis
     Route: 048
     Dates: start: 20210308, end: 20210423
  7. MORPHINE SULFATE [Concomitant]
     Active Substance: MORPHINE SULFATE
     Indication: Chest pain
     Route: 048
     Dates: start: 202102, end: 202105
  8. MORPHINE SULFATE [Concomitant]
     Active Substance: MORPHINE SULFATE
     Route: 048
     Dates: start: 202102, end: 202105
  9. NALOXEGOL OXALATE [Concomitant]
     Active Substance: NALOXEGOL OXALATE
     Indication: Constipation
     Route: 048
     Dates: start: 20210304, end: 20210423
  10. NEFOPAM [Concomitant]
     Active Substance: NEFOPAM
     Indication: Chest pain
     Dosage: 3 AMPULE
     Route: 030
     Dates: start: 20210304, end: 202105
  11. DOLIPRANE [Concomitant]
     Active Substance: ACETAMINOPHEN
     Indication: Pain
     Dates: start: 20210303
  12. EUPANTOL [Concomitant]
     Active Substance: PANTOPRAZOLE SODIUM
     Indication: Gastrooesophageal reflux prophylaxis
     Dates: start: 20210304
  13. CALCIUM PHOSPHATE, DIBASIC, ANHYDROUS\MAGNESIUM GLYCEROPHOSPHATE\PHOSP [Concomitant]
     Active Substance: CALCIUM PHOSPHATE, DIBASIC, ANHYDROUS\MAGNESIUM GLYCEROPHOSPHATE\PHOSPHORIC ACID\SODIUM PHOSPHATE, D
     Indication: Prophylaxis
     Dates: start: 20210322, end: 20210427
  14. VITAMIN B12 [Concomitant]
     Active Substance: CYANOCOBALAMIN
     Indication: Premedication
     Dates: start: 20210307
  15. SOLU-MEDROL [Concomitant]
     Active Substance: METHYLPREDNISOLONE SODIUM SUCCINATE
     Indication: Colitis
     Route: 042
     Dates: start: 20210415, end: 20210415
  16. SOLU-MEDROL [Concomitant]
     Active Substance: METHYLPREDNISOLONE SODIUM SUCCINATE
     Route: 042
     Dates: start: 20210416, end: 20210425
  17. SOLU-MEDROL [Concomitant]
     Active Substance: METHYLPREDNISOLONE SODIUM SUCCINATE
     Dates: start: 20210414, end: 20210414
  18. SODIUM CHLORIDE [Concomitant]
     Active Substance: SODIUM CHLORIDE
     Route: 042
     Dates: start: 20210414
  19. SKENAN [Concomitant]
     Active Substance: MORPHINE SULFATE
     Indication: Chest pain
     Dates: start: 202102
  20. DUPHALAC [Concomitant]
     Active Substance: LACTULOSE
     Indication: Constipation
     Dates: start: 20210304, end: 20210427
  21. NOREPINEPHRINE [Concomitant]
     Active Substance: NOREPINEPHRINE
     Indication: Renal failure
     Dosage: DOSE PRN OTHER
     Route: 042
     Dates: start: 20210423, end: 20210426
  22. NOREPINEPHRINE [Concomitant]
     Active Substance: NOREPINEPHRINE
     Indication: Septic shock
     Dosage: DOSE: PRN UNKNOWN
     Route: 042
     Dates: start: 20210506, end: 20210511

REACTIONS (2)
  - Colitis [Fatal]
  - Febrile neutropenia [Recovered/Resolved]

NARRATIVE: CASE EVENT DATE: 20210414
